FAERS Safety Report 23393892 (Version 1)
Quarter: 2024Q1

REPORT INFORMATION
  Report Type: Spontaneous
  Country: US (occurrence: US)
  Receive Date: 20240111
  Receipt Date: 20240111
  Transmission Date: 20240410
  Serious: No
  Sender: FDA-Public Use
  Company Number: US-BRISTOL-MYERS SQUIBB COMPANY-2024-005938

PATIENT
  Age: 71 Year
  Sex: Male
  Weight: 68.04 kg

DRUGS (2)
  1. REVLIMID [Suspect]
     Active Substance: LENALIDOMIDE
     Indication: Mantle cell lymphoma
     Route: 048
  2. FISH OIL [Concomitant]
     Active Substance: FISH OIL

REACTIONS (2)
  - Back pain [Unknown]
  - Neck pain [Unknown]
